FAERS Safety Report 5504477-X (Version None)
Quarter: 2007Q4

REPORT INFORMATION
  Report Type: 
  Country: None (occurrence: None)
  Receive Date: 20071031
  Receipt Date: 20071016
  Transmission Date: 20080405
  Serious: Yes (Hospitalization, Other)
  Sender: FDA-Public Use
  Company Number: 100#08#2007-04121

PATIENT
  Age: 51 Year
  Sex: Female

DRUGS (2)
  1. LITHIUM CARBONATE [Suspect]
     Indication: AFFECTIVE DISORDER
  2. L-THYROXINE(LEVOTHYROXINE) (L-THYROXINE) [Concomitant]

REACTIONS (8)
  - HYPOTHYROIDISM [None]
  - KIDNEY FIBROSIS [None]
  - NEPHROGENIC DIABETES INSIPIDUS [None]
  - NEPHROPATHY [None]
  - OVERWEIGHT [None]
  - RENAL CYST [None]
  - RENAL FAILURE [None]
  - RENAL TUBULAR ATROPHY [None]
